FAERS Safety Report 10599922 (Version 4)
Quarter: 2015Q1

REPORT INFORMATION
  Report Type: Spontaneous
  Country: US (occurrence: US)
  Receive Date: 20141121
  Receipt Date: 20150123
  Transmission Date: 20150720
  Serious: Yes (Death, Hospitalization)
  Sender: FDA-Public Use
  Company Number: US-ACTELION-A-US2014-108700

PATIENT
  Age: 70 Year
  Sex: Female

DRUGS (1)
  1. VENTAVIS [Suspect]
     Active Substance: ILOPROST
     Indication: PULMONARY ARTERIAL HYPERTENSION
     Dosage: 5 MCG, 6X/ADAY
     Route: 055
     Dates: start: 20130726

REACTIONS (9)
  - Renal disorder [Unknown]
  - Endotracheal intubation [Not Recovered/Not Resolved]
  - Brain injury [Not Recovered/Not Resolved]
  - Disease progression [Fatal]
  - Myocardial infarction [Not Recovered/Not Resolved]
  - Cardiac arrest [Not Recovered/Not Resolved]
  - Blood pressure inadequately controlled [Unknown]
  - Loss of consciousness [Not Recovered/Not Resolved]
  - Medical induction of coma [Not Recovered/Not Resolved]

NARRATIVE: CASE EVENT DATE: 20141105
